FAERS Safety Report 7699456-0 (Version None)
Quarter: 2011Q3

REPORT INFORMATION
  Report Type: 
  Country: None (occurrence: None)
  Receive Date: 20110820
  Receipt Date: 20100924
  Transmission Date: 20111222
  Serious: No
  Sender: FDA-Public Use
  Company Number: US-ALLERGAN-1012404US

PATIENT
  Age: 78 Year
  Sex: Male

DRUGS (5)
  1. SANCTURA XR [Suspect]
     Indication: URINARY RETENTION
     Dosage: 60 MG, QD
     Route: 048
     Dates: start: 20100901, end: 20100922
  2. RAPIDFLOW [Concomitant]
     Indication: URINARY RETENTION
     Dosage: 8 MG, QD
     Route: 048
     Dates: start: 20100601
  3. SANCTURA XR [Suspect]
     Dosage: 60 MG, QD
  4. SANCTURA XR [Suspect]
     Dosage: 120 MG, SINGLE
     Dates: start: 20100923, end: 20100923
  5. AVODART [Concomitant]
     Indication: URINARY RETENTION
     Dosage: 0.5 MG, QD
     Route: 048
     Dates: start: 20100601

REACTIONS (3)
  - EPISTAXIS [None]
  - NASAL DRYNESS [None]
  - INCORRECT DOSE ADMINISTERED [None]
